FAERS Safety Report 20361307 (Version 1)
Quarter: 2022Q1

REPORT INFORMATION
  Report Type: Spontaneous
  Country: US (occurrence: US)
  Receive Date: 20220121
  Receipt Date: 20220121
  Transmission Date: 20220424
  Serious: No
  Sender: FDA-Public Use
  Company Number: US-JNJFOC-20220127452

PATIENT
  Sex: Female

DRUGS (1)
  1. CHILDRENS ZYRTEC [Suspect]
     Active Substance: CETIRIZINE HYDROCHLORIDE
     Indication: Accidental exposure to product
     Dosage: DRANK LIKE A LITTLE CLEAR CAP, LIKE A CAPFUL
     Route: 048
     Dates: start: 20220112

REACTIONS (3)
  - Accidental exposure to product [Unknown]
  - Accidental overdose [Unknown]
  - Failure of child resistant product closure [Unknown]

NARRATIVE: CASE EVENT DATE: 20220112
